FAERS Safety Report 5133024-X (Version None)
Quarter: 2006Q4

REPORT INFORMATION
  Report Type: 
  Country: None (occurrence: None)
  Receive Date: 20061023
  Receipt Date: 20061011
  Transmission Date: 20070319
  Serious: Yes (Other)
  Sender: FDA-Public Use
  Company Number: US-AVENTIS-200618493US

PATIENT
  Sex: Female
  Weight: 79.99 kg

DRUGS (4)
  1. KETEK [Suspect]
     Indication: COUGH
     Dates: start: 20060912, end: 20060916
  2. ZOLOFT                             /01011401/ [Concomitant]
  3. ATIVAN [Concomitant]
  4. HERCEPTIN [Concomitant]
     Indication: BREAST CANCER FEMALE
     Dates: start: 20060912, end: 20060912

REACTIONS (7)
  - ARRHYTHMIA [None]
  - BLOOD SODIUM DECREASED [None]
  - CONVULSION [None]
  - DIZZINESS [None]
  - LOSS OF CONSCIOUSNESS [None]
  - PULSE ABSENT [None]
  - SYNCOPE VASOVAGAL [None]
